FAERS Safety Report 9207519 (Version 1)
Quarter: 2013Q2

REPORT INFORMATION
  Report Type: Spontaneous
  Country: BR (occurrence: BR)
  Receive Date: 20130403
  Receipt Date: 20130403
  Transmission Date: 20140414
  Serious: Yes (Other)
  Sender: FDA-Public Use
  Company Number: BR-BAYER-2012-012583

PATIENT
  Age: 33 Year
  Sex: Female

DRUGS (1)
  1. QLAIRA [Suspect]
     Indication: PRODUCT USED FOR UNKNOWN INDICATION
     Dosage: 1 DF, QD
     Route: 048
     Dates: start: 201108, end: 20120203

REACTIONS (7)
  - Pregnancy on oral contraceptive [None]
  - Uterine disorder [Recovered/Resolved]
  - Diarrhoea [None]
  - Nausea [Not Recovered/Not Resolved]
  - Hypomenorrhoea [None]
  - Fluid retention [None]
  - Drug ineffective [None]
